FAERS Safety Report 12262335 (Version 1)
Quarter: 2016Q2

REPORT INFORMATION
  Report Type: Spontaneous
  Country: SA (occurrence: SA)
  Receive Date: 20160413
  Receipt Date: 20160413
  Transmission Date: 20160815
  Serious: Yes (Hospitalization)
  Sender: FDA-Public Use
  Company Number: SA-MYLANLABS-2016M1015114

PATIENT

DRUGS (9)
  1. IMIPENEM [Suspect]
     Active Substance: IMIPENEM
     Indication: MIDDLE EAST RESPIRATORY SYNDROME
     Route: 065
  2. OSELTAMIVIR [Suspect]
     Active Substance: OSELTAMIVIR
     Indication: CORONA VIRUS INFECTION
  3. IMIPENEM [Suspect]
     Active Substance: IMIPENEM
     Indication: CORONA VIRUS INFECTION
  4. AZITHROMYCIN ANHYDROUS. [Suspect]
     Active Substance: AZITHROMYCIN ANHYDROUS
     Indication: MIDDLE EAST RESPIRATORY SYNDROME
     Route: 065
  5. VANCOMYCIN [Suspect]
     Active Substance: VANCOMYCIN
     Indication: MIDDLE EAST RESPIRATORY SYNDROME
     Route: 065
  6. OSELTAMIVIR [Suspect]
     Active Substance: OSELTAMIVIR
     Indication: MIDDLE EAST RESPIRATORY SYNDROME
     Route: 065
  7. VANCOMYCIN [Suspect]
     Active Substance: VANCOMYCIN
     Indication: CORONA VIRUS INFECTION
  8. DEXAMETHASONE. [Suspect]
     Active Substance: DEXAMETHASONE
     Indication: PRODUCT USED FOR UNKNOWN INDICATION
     Route: 065
  9. AZITHROMYCIN ANHYDROUS. [Suspect]
     Active Substance: AZITHROMYCIN ANHYDROUS
     Indication: CORONA VIRUS INFECTION

REACTIONS (6)
  - Middle East respiratory syndrome [Unknown]
  - Maternal exposure during pregnancy [Recovered/Resolved]
  - Condition aggravated [Unknown]
  - Corona virus infection [Unknown]
  - Premature delivery [Recovered/Resolved]
  - Drug ineffective [Unknown]
